FAERS Safety Report 19698904 (Version 1)
Quarter: 2021Q3

REPORT INFORMATION
  Report Type: Spontaneous
  Country: CN (occurrence: CN)
  Receive Date: 20210813
  Receipt Date: 20210813
  Transmission Date: 20211014
  Serious: Yes (Hospitalization, Other)
  Sender: FDA-Public Use
  Company Number: CN-ORGANON-O2108CHN000678

PATIENT
  Age: 8 Year
  Sex: Male

DRUGS (4)
  1. DESLORATADINE. [Suspect]
     Active Substance: DESLORATADINE
     Dosage: DRY SUSPENSION
     Route: 048
  2. DESLORATADINE. [Suspect]
     Active Substance: DESLORATADINE
     Dosage: DRY SUSPENSION, QD
     Route: 048
  3. FLUTICASONE PROPIONATE. [Concomitant]
     Active Substance: FLUTICASONE PROPIONATE
     Indication: URTICARIA
     Dosage: UNK, QD
     Route: 061
  4. DESLORATADINE. [Suspect]
     Active Substance: DESLORATADINE
     Dosage: DRY SUSPENSION
     Route: 048

REACTIONS (1)
  - Epilepsy [Recovered/Resolved]
